FAERS Safety Report 21044089 (Version 1)
Quarter: 2022Q3

REPORT INFORMATION
  Report Type: Spontaneous
  Country: US (occurrence: None)
  Receive Date: 20220705
  Receipt Date: 20220705
  Transmission Date: 20221026
  Serious: Yes (Other)
  Sender: FDA-Public Use
  Company Number: None

PATIENT
  Age: 48 Year
  Sex: Male

DRUGS (3)
  1. HUMIRA [Suspect]
     Active Substance: ADALIMUMAB
     Indication: Colitis ulcerative
     Dosage: FREQUENCY : EVERY OTHER WEEK;?
     Route: 058
     Dates: start: 20210427
  2. BALSALAZIDE [Concomitant]
     Active Substance: BALSALAZIDE
  3. CETIRIZINE [Concomitant]
     Active Substance: CETIRIZINE HYDROCHLORIDE

REACTIONS (2)
  - Aggression [None]
  - Agitation [None]

NARRATIVE: CASE EVENT DATE: 20220705
